FAERS Safety Report 5597598-7 (Version None)
Quarter: 2008Q1

REPORT INFORMATION
  Report Type: 
  Country: None (occurrence: None)
  Receive Date: 20080121
  Receipt Date: 20071219
  Transmission Date: 20080703
  Serious: Yes (Hospitalization)
  Sender: FDA-Public Use
  Company Number: B0503853A

PATIENT
  Age: 69 Year
  Sex: Female

DRUGS (3)
  1. AVANDIA [Suspect]
     Route: 048
     Dates: start: 20070101
  2. DIAMICRON [Concomitant]
     Route: 048
     Dates: end: 20070101
  3. GLUCOR [Concomitant]
     Route: 048
     Dates: end: 20070101

REACTIONS (5)
  - DYSARTHRIA [None]
  - DYSPHAGIA [None]
  - DYSPNOEA [None]
  - MUSCLE CONTRACTIONS INVOLUNTARY [None]
  - WEIGHT INCREASED [None]
